FAERS Safety Report 5112942-2 (Version None)
Quarter: 2006Q3

REPORT INFORMATION
  Report Type: 
  Country: None (occurrence: None)
  Receive Date: 20060731
  Receipt Date: 20060504
  Transmission Date: 20061208
  Serious: No
  Sender: FDA-Public Use
  Company Number: 2006PV013295

PATIENT
  Age: 49 Year
  Sex: Female
  Weight: 104.3273 kg

DRUGS (4)
  1. BYETTA [Suspect]
     Indication: DIABETES MELLITUS NON-INSULIN-DEPENDENT
     Dosage: SEE IMAGE
     Route: 058
     Dates: start: 20060311, end: 20060409
  2. BYETTA [Suspect]
     Indication: DIABETES MELLITUS NON-INSULIN-DEPENDENT
     Dosage: SEE IMAGE
     Route: 058
     Dates: start: 20060410
  3. METFORMIN HCL [Concomitant]
  4. AMARYL [Concomitant]

REACTIONS (4)
  - DIARRHOEA [None]
  - FAECES DISCOLOURED [None]
  - NAUSEA [None]
  - VOMITING [None]
